FAERS Safety Report 10717445 (Version 3)
Quarter: 2015Q1

REPORT INFORMATION
  Report Type: Spontaneous
  Country: JP (occurrence: JP)
  Receive Date: 20150116
  Receipt Date: 20150130
  Transmission Date: 20150721
  Serious: Yes (Congenital Anomaly, Other)
  Sender: FDA-Public Use
  Company Number: JP-PFIZER INC-2014230811

PATIENT
  Sex: Male
  Weight: 3.19 kg

DRUGS (9)
  1. CLARITH [Concomitant]
     Active Substance: CLARITHROMYCIN
     Indication: CYSTITIS
     Dosage: 200 MG, 2X/DAY
     Route: 064
     Dates: start: 20131218, end: 20140104
  2. RIZE [Concomitant]
     Active Substance: CLOTIAZEPAM
     Indication: SOMATOFORM DISORDER
     Dosage: 5 MG, AS NEEDED
     Route: 064
  3. FLOMOX [Concomitant]
     Active Substance: CEFCAPENE PIVOXIL HYDROCHLORIDE HYDRATE
     Indication: CYSTITIS
     Dosage: 100 MG, 3X/DAY
     Route: 064
     Dates: start: 20131121, end: 20131124
  4. BIO-THREE [Concomitant]
     Active Substance: HERBALS
     Indication: DIARRHOEA
     Dosage: 1 TABLET, 3X/DAY
     Route: 064
     Dates: start: 20131121, end: 20140211
  5. FLOMOX [Concomitant]
     Active Substance: CEFCAPENE PIVOXIL HYDROCHLORIDE HYDRATE
     Indication: PYELONEPHRITIS
     Dosage: 100 MG, 3X/DAY
     Route: 064
     Dates: start: 20131221, end: 20131221
  6. JZOLOFT [Suspect]
     Active Substance: SERTRALINE HYDROCHLORIDE
     Indication: SOMATOFORM DISORDER
     Dosage: 50 MG, 1X/DAY
     Route: 064
     Dates: end: 20131107
  7. CEREKINON [Concomitant]
     Active Substance: TRIMEBUTINE
     Indication: IRRITABLE BOWEL SYNDROME
     Dosage: 100 MG, 1X/DAY
     Route: 064
     Dates: end: 20131107
  8. KEFRAL [Concomitant]
     Active Substance: CEFACLOR
     Indication: CYSTITIS
     Dosage: 500 MG, 3X/DAY
     Route: 064
     Dates: start: 20131125, end: 20131209
  9. CALONAL [Concomitant]
     Active Substance: ACETAMINOPHEN
     Indication: PYREXIA
     Dosage: 400 MG, 3X/DAY
     Route: 064
     Dates: start: 20131222, end: 20140109

REACTIONS (5)
  - Maternal exposure during pregnancy [Unknown]
  - Deafness [Unknown]
  - Cytogenetic abnormality [Unknown]
  - Trisomy 21 [Unknown]
  - Hypotonia [Unknown]

NARRATIVE: CASE EVENT DATE: 20140515
